FAERS Safety Report 5209428-3 (Version None)
Quarter: 2006Q4

REPORT INFORMATION
  Report Type: 
  Country: None (occurrence: None)
  Receive Date: 20061101
  Receipt Date: 20060615
  Transmission Date: 20070319
  Serious: No
  Sender: FDA-Public Use
  Company Number: 2006PV015690

PATIENT
  Age: 63 Year
  Sex: Male
  Weight: 128.368 kg

DRUGS (4)
  1. SYMLIN [Suspect]
     Indication: DIABETES MELLITUS
     Dosage: 120 + 60 + 30 MCG; TID; SC
     Route: 058
     Dates: start: 20060201
  2. AUGMENTIN '125' [Suspect]
     Dosage: 825 MG; TID; UNKNOWN
     Dates: start: 20060601
  3. HUMULIN 70/30 [Concomitant]
  4. METFORMIN [Concomitant]

REACTIONS (5)
  - BLOOD GLUCOSE DECREASED [None]
  - BLOOD GLUCOSE INCREASED [None]
  - EAR INFECTION [None]
  - INFECTED INSECT BITE [None]
  - PARAESTHESIA [None]
